FAERS Safety Report 10952276 (Version 1)
Quarter: 2015Q1

REPORT INFORMATION
  Report Type: Spontaneous
  Country: US (occurrence: US)
  Receive Date: 20150325
  Receipt Date: 20150325
  Transmission Date: 20150721
  Serious: No
  Sender: FDA-Public Use
  Company Number: US-009507513-1503USA006561

PATIENT
  Sex: Female

DRUGS (2)
  1. NUVARING [Suspect]
     Active Substance: ETHINYL ESTRADIOL\ETONOGESTREL
     Dosage: ONE RING, UNK
     Route: 067
     Dates: start: 20140220, end: 20140303
  2. NUVARING [Suspect]
     Active Substance: ETHINYL ESTRADIOL\ETONOGESTREL
     Dosage: ONE RING, UNK
     Route: 067

REACTIONS (2)
  - Incorrect drug administration duration [Unknown]
  - Adverse event [Unknown]

NARRATIVE: CASE EVENT DATE: 20140303
